FAERS Safety Report 9457970 (Version 1)
Quarter: 2013Q3

REPORT INFORMATION
  Report Type: Spontaneous
  Country: FR (occurrence: FR)
  Receive Date: 20130814
  Receipt Date: 20130814
  Transmission Date: 20140515
  Serious: Yes (Hospitalization)
  Sender: FDA-Public Use
  Company Number: FR-SANOFI-AVENTIS-2013SA079317

PATIENT
  Age: 70 Year
  Sex: Male

DRUGS (11)
  1. DANATROL [Suspect]
     Indication: PRODUCT USED FOR UNKNOWN INDICATION
     Route: 048
     Dates: start: 20130425, end: 20130617
  2. KARDEGIC [Suspect]
     Indication: PRODUCT USED FOR UNKNOWN INDICATION
     Route: 048
     Dates: start: 20130609, end: 20130621
  3. OFLOCET [Suspect]
     Indication: PRODUCT USED FOR UNKNOWN INDICATION
     Route: 048
     Dates: start: 20130608, end: 20130615
  4. APROVEL [Suspect]
     Indication: PRODUCT USED FOR UNKNOWN INDICATION
     Route: 048
     Dates: start: 20130608, end: 20130621
  5. COAPROVEL [Suspect]
     Indication: PRODUCT USED FOR UNKNOWN INDICATION
     Dosage: DOSE:1 UNIT(S)
     Route: 048
     Dates: start: 2012
  6. ROCEPHINE [Suspect]
     Indication: PRODUCT USED FOR UNKNOWN INDICATION
     Dosage: FORM: POWDER FOR INJECTABLE SOLUTION?STRENGTH: 1 G
     Route: 042
     Dates: start: 20130608, end: 20130615
  7. FUROSEMIDE [Suspect]
     Indication: PRODUCT USED FOR UNKNOWN INDICATION
     Dosage: STRENGTH: 20MG/2 ML
     Route: 042
     Dates: start: 20130608, end: 20130617
  8. ESIDREX [Suspect]
     Indication: PRODUCT USED FOR UNKNOWN INDICATION
     Dosage: STRENGTH:25 MG.
     Route: 048
     Dates: start: 20130608, end: 20130617
  9. EPREX [Concomitant]
     Route: 058
     Dates: start: 20130528
  10. GRANOCYTE [Concomitant]
     Dosage: 13.2 MIU TWICE WEEKLY
     Dates: start: 20130528
  11. RED BLOOD CELLS [Concomitant]
     Dates: start: 20130608

REACTIONS (1)
  - Renal failure acute [Recovering/Resolving]
